FAERS Safety Report 24703349 (Version 2)
Quarter: 2024Q4

REPORT INFORMATION
  Report Type: Report from Study
  Country: US (occurrence: US)
  Receive Date: 20241205
  Receipt Date: 20241210
  Transmission Date: 20250115
  Serious: Yes (Other)
  Sender: ALEXION PHARMACEUTICALS
  Company Number: US-AstraZeneca-CH-00761177A

PATIENT

DRUGS (8)
  1. NEXIUM [Suspect]
     Active Substance: ESOMEPRAZOLE MAGNESIUM
     Dosage: ONCE A DAY, ONE CAPSULE DAILY
  2. NEXIUM [Suspect]
     Active Substance: ESOMEPRAZOLE MAGNESIUM
     Dosage: ONCE A DAY, ONE CAPSULE DAILY
     Route: 048
  3. NEXIUM [Suspect]
     Active Substance: ESOMEPRAZOLE MAGNESIUM
     Dosage: ONCE A DAY, ONE CAPSULE DAILY
  4. NEXIUM [Suspect]
     Active Substance: ESOMEPRAZOLE MAGNESIUM
     Dosage: ONCE A DAY, ONE CAPSULE DAILY
     Route: 048
  5. TICAGRELOR [Suspect]
     Active Substance: TICAGRELOR
     Route: 065
  6. TICAGRELOR [Suspect]
     Active Substance: TICAGRELOR
     Route: 065
  7. TICAGRELOR [Suspect]
     Active Substance: TICAGRELOR
     Route: 065
  8. TICAGRELOR [Suspect]
     Active Substance: TICAGRELOR
     Route: 065

REACTIONS (1)
  - Coronary artery occlusion [Unknown]
